FAERS Safety Report 10997232 (Version 1)
Quarter: 2015Q1

REPORT INFORMATION
  Report Type: Spontaneous
  Country: US (occurrence: None)
  Receive Date: 20150331
  Receipt Date: 20150331
  Transmission Date: 20150721
  Serious: Yes (Other)
  Sender: FDA-Public Use
  Company Number: PHEH2014US005749

PATIENT
  Age: 86 Year
  Sex: Male

DRUGS (12)
  1. VITAMIN B COMPLEX [Concomitant]
     Active Substance: CYANOCOBALAMIN\DEXPANTHENOL\NIACINAMIDE\PYRIDOXINE HYDROCHLORIDE\RIBOFLAVIN 5^-PHOSPHATE SODIUM\THIAMINE HYDROCHLORIDE\VITAMIN B COMPLEX
  2. EXELON PATCH [Suspect]
     Active Substance: RIVASTIGMINE
     Dosage: 9.5 MG, UNK, TRANSDERMAL
     Route: 062
  3. VINPOCETINE (VINPOCETINE) [Concomitant]
  4. SEROQUEL [Suspect]
     Active Substance: QUETIAPINE FUMARATE
     Dosage: UNK UKN, UNK
  5. ACETYLCARNITINE (ACETYLCARNITINE) [Concomitant]
  6. OMEGA 3 (DOCOSAHEXAENOIC ACID, EICOSAPENTAENOIC ACID) [Concomitant]
  7. VITAMIN D3 [Concomitant]
     Active Substance: CHOLECALCIFEROL
  8. COQ10 (UBIDECARENONE) [Concomitant]
     Active Substance: UBIDECARENONE
  9. VITAMIN C [Concomitant]
     Active Substance: ASCORBIC ACID
  10. VITAMIN E [Concomitant]
     Active Substance: .ALPHA.-TOCOPHEROL
  11. CREATINE (CREATINE) TABLET [Concomitant]
  12. POLICOSANOL (POLICOSANOL) [Concomitant]

REACTIONS (8)
  - Weight decreased [None]
  - Asthenia [None]
  - Bladder dysfunction [None]
  - Visual impairment [None]
  - Feeling abnormal [None]
  - Thinking abnormal [None]
  - Insomnia [None]
  - Tremor [None]
